FAERS Safety Report 5155732-7 (Version None)
Quarter: 2006Q4

REPORT INFORMATION
  Report Type: 
  Country: None (occurrence: None)
  Receive Date: 20061113
  Receipt Date: 20061101
  Transmission Date: 20070319
  Serious: Yes (Hospitalization)
  Sender: FDA-Public Use
  Company Number: 2006PV022841

PATIENT
  Age: 70 Year
  Sex: Female
  Weight: 95.2554 kg

DRUGS (8)
  1. BYETTA [Suspect]
     Indication: DIABETES MELLITUS NON-INSULIN-DEPENDENT
     Dosage: 10 MCG QAM SC ; 10 MCG BID SC ; 5 MCG BID SC
     Route: 058
     Dates: start: 20060720, end: 20060701
  2. BYETTA [Suspect]
     Indication: DIABETES MELLITUS NON-INSULIN-DEPENDENT
     Dosage: 10 MCG QAM SC ; 10 MCG BID SC ; 5 MCG BID SC
     Route: 058
     Dates: start: 20060701, end: 20060920
  3. BYETTA [Suspect]
     Indication: DIABETES MELLITUS NON-INSULIN-DEPENDENT
     Dosage: 10 MCG QAM SC ; 10 MCG BID SC ; 5 MCG BID SC
     Route: 058
     Dates: start: 20060921
  4. GLUCOTROL XL [Concomitant]
  5. LANTUS [Concomitant]
  6. HUMALOG [Concomitant]
  7. GLYBURIDE [Concomitant]
  8. IRON SUPPLEMENT [Concomitant]

REACTIONS (4)
  - BASAL CELL CARCINOMA [None]
  - BLOOD GLUCOSE INCREASED [None]
  - HAEMOGLOBIN DECREASED [None]
  - HYPERSOMNIA [None]
